FAERS Safety Report 6034656-7 (Version None)
Quarter: 2009Q1

REPORT INFORMATION
  Report Type: 
  Country: None (occurrence: None)
  Receive Date: 20090112
  Receipt Date: 20090106
  Transmission Date: 20090719
  Serious: Yes (Other)
  Sender: FDA-Public Use
  Company Number: US-PFIZER INC-2009151586

PATIENT

DRUGS (1)
  1. LIPITOR [Suspect]

REACTIONS (4)
  - DEPRESSION [None]
  - INSOMNIA [None]
  - MOOD SWINGS [None]
  - SYSTEMIC LUPUS ERYTHEMATOSUS [None]
